FAERS Safety Report 8494721-1 (Version None)
Quarter: 2012Q3

REPORT INFORMATION
  Report Type: 
  Country: None (occurrence: None)
  Receive Date: 20120709
  Receipt Date: 20120629
  Transmission Date: 20120928
  Serious: Yes (Other)
  Sender: FDA-Public Use
  Company Number: CA-JNJFOC-20120701037

PATIENT
  Sex: Male
  Weight: 65 kg

DRUGS (2)
  1. ALCOHOL [Suspect]
     Indication: PRODUCT USED FOR UNKNOWN INDICATION
     Route: 065
  2. REMICADE [Suspect]
     Indication: CROHN'S DISEASE
     Route: 042
     Dates: start: 20110617

REACTIONS (5)
  - TREMOR [None]
  - ALCOHOL ABUSE [None]
  - VOMITING [None]
  - CHILLS [None]
  - NAUSEA [None]
